FAERS Safety Report 13957946 (Version 1)
Quarter: 2017Q3

REPORT INFORMATION
  Report Type: Spontaneous
  Country: US (occurrence: US)
  Receive Date: 20170911
  Receipt Date: 20170911
  Transmission Date: 20171128
  Serious: Yes (Other)
  Sender: FDA-Public Use
  Company Number: US-ROCHE-1064650

PATIENT
  Age: 55 Year
  Sex: Male
  Weight: 79.9 kg

DRUGS (3)
  1. DECADRON [Concomitant]
     Active Substance: DEXAMETHASONE
     Route: 042
  2. RITUXAN [Suspect]
     Active Substance: RITUXIMAB
     Indication: LYMPHOMA
     Route: 036
     Dates: start: 20120322, end: 20120322
  3. RITUXAN [Suspect]
     Active Substance: RITUXIMAB
     Route: 036
     Dates: start: 20120419, end: 20120419

REACTIONS (1)
  - Hypersensitivity [Recovered/Resolved]

NARRATIVE: CASE EVENT DATE: 20120322
